FAERS Safety Report 19612653 (Version 1)
Quarter: 2021Q3

REPORT INFORMATION
  Report Type: Spontaneous
  Country: CZ (occurrence: CZ)
  Receive Date: 20210727
  Receipt Date: 20210727
  Transmission Date: 20211014
  Serious: Yes (Other)
  Sender: FDA-Public Use
  Company Number: CZ-TEVA-2021-CZ-1935585

PATIENT
  Sex: Male

DRUGS (3)
  1. TYSABRI [Suspect]
     Active Substance: NATALIZUMAB
     Indication: MULTIPLE SCLEROSIS
     Dosage: ADDITIONAL INFO: ROUTE:065(16?JAN?15)
     Route: 065
     Dates: start: 202005
  2. COPAXONE [Suspect]
     Active Substance: GLATIRAMER ACETATE
     Indication: MULTIPLE SCLEROSIS
     Dosage: ADDITIONAL INFO: ROUTE:065(16?JAN?15)
     Route: 065
     Dates: end: 202005
  3. COMIRNATY [Suspect]
     Active Substance: TOZINAMERAN
     Indication: COVID-19 PROPHYLAXIS
     Dosage: ADDITIONAL INFO: ROUTE:065(16?JAN?15)
     Route: 065

REACTIONS (1)
  - Plasma cell myeloma [Unknown]
